FAERS Safety Report 11280005 (Version 2)
Quarter: 2015Q4

REPORT INFORMATION
  Report Type: Spontaneous
  Country: US (occurrence: US)
  Receive Date: 20150717
  Receipt Date: 20151016
  Transmission Date: 20160304
  Serious: No
  Sender: FDA-Public Use
  Company Number: US-GALDERMA-US15004539

PATIENT
  Age: 74 Year
  Sex: Male

DRUGS (12)
  1. METOPROLOL SUCCINATE. [Concomitant]
     Active Substance: METOPROLOL SUCCINATE
     Dosage: 100 MG
     Route: 048
     Dates: start: 201001
  2. METROGEL [Concomitant]
     Active Substance: METRONIDAZOLE
     Indication: ROSACEA
     Dosage: 0.75%
     Route: 061
     Dates: start: 201303
  3. OLAY MOISTURIZER WITH SPF 15 [Concomitant]
     Route: 061
  4. MIRVASO [Concomitant]
     Active Substance: BRIMONIDINE TARTRATE
     Indication: ROSACEA
     Dosage: 0.33%
     Route: 061
     Dates: start: 201404
  5. MULTI VITAMIN [Concomitant]
     Active Substance: VITAMINS
     Route: 048
  6. OLAY SENSITIVE SKIN [Concomitant]
     Indication: THERAPEUTIC SKIN CARE TOPICAL
     Route: 061
  7. LEVOCETIRIZINE [Concomitant]
     Active Substance: LEVOCETIRIZINE
     Dosage: 5 MG
     Route: 048
     Dates: start: 201403
  8. METROGEL [Concomitant]
     Active Substance: METRONIDAZOLE
     Indication: ROSACEA
     Route: 061
     Dates: start: 201505
  9. UNKNOWN SUN SCREEN SPF 50 [Concomitant]
     Indication: PROPHYLAXIS AGAINST SOLAR RADIATION
     Route: 061
  10. ZYRTEC (CETIRIZINE) [Concomitant]
     Route: 048
  11. SOOLANTRA [Suspect]
     Active Substance: IVERMECTIN
     Indication: ROSACEA
     Dosage: 1%
     Route: 061
     Dates: start: 20150421, end: 20150508
  12. OLAY COMPLETE [Concomitant]
     Route: 061
     Dates: start: 201001

REACTIONS (2)
  - Drug ineffective [Recovered/Resolved]
  - Rosacea [Recovered/Resolved]

NARRATIVE: CASE EVENT DATE: 201504
